FAERS Safety Report 6106850-8 (Version None)
Quarter: 2009Q1

REPORT INFORMATION
  Report Type: 
  Country: None (occurrence: None)
  Receive Date: 20090304
  Receipt Date: 20090217
  Transmission Date: 20090719
  Serious: Yes (Death, Disabling, Other)
  Sender: FDA-Public Use
  Company Number: 2008001667

PATIENT
  Age: 70 Year
  Sex: Female
  Weight: 55.4 kg

DRUGS (9)
  1. ERLOTINIB (ERLOTINIB) (TABLET) (ERLOTINIB) [Suspect]
     Indication: LUNG ADENOCARCINOMA
     Dosage: (150 MG,QD),ORAL
     Dates: start: 20080609, end: 20080629
  2. DIART (AZOSEMIDE) [Concomitant]
  3. CELECOXIB [Concomitant]
  4. TIZANIDINE HCL [Concomitant]
  5. MUCOSTA (REBAMIPIDE) [Concomitant]
  6. HUSTAZOL (CLOPERASTINE HYDROCHLORIDE) [Concomitant]
  7. ALDACTONE [Concomitant]
  8. PREDNISOLONE [Concomitant]
  9. BROCIN-CODEINE (BROCIN-CODEINE ) [Concomitant]

REACTIONS (6)
  - DIARRHOEA [None]
  - MALIGNANT NEOPLASM PROGRESSION [None]
  - PAIN [None]
  - PRURITUS [None]
  - RASH [None]
  - SKIN ULCER [None]
